FAERS Safety Report 9162855 (Version 1)
Quarter: 2013Q1

REPORT INFORMATION
  Report Type: Spontaneous
  Country: US (occurrence: US)
  Receive Date: 20130314
  Receipt Date: 20130314
  Transmission Date: 20140127
  Serious: Yes (Other)
  Sender: FDA-Public Use
  Company Number: US-BAYER-2013-032001

PATIENT
  Age: 82 Year
  Sex: Female
  Weight: 68.03 kg

DRUGS (4)
  1. ALEVE CAPLET/TABLET,MIDOL EXTENDED RELIEF CAPLET [Suspect]
     Indication: ARTHRITIS
     Dosage: 2 DF, PRN
     Route: 048
  2. MAXZIDE [Concomitant]
  3. MULTIVITAMIN [Concomitant]
  4. CALCIUM [CALCIUM] [Concomitant]

REACTIONS (1)
  - Melaena [Recovered/Resolved]
